FAERS Safety Report 9164881 (Version 2)
Quarter: 2013Q3

REPORT INFORMATION
  Report Type: Spontaneous
  Country: FR (occurrence: FR)
  Receive Date: 20130315
  Receipt Date: 20130827
  Transmission Date: 20140515
  Serious: Yes (Hospitalization)
  Sender: FDA-Public Use
  Company Number: FR-PFIZER INC-2013081306

PATIENT
  Age: 73 Year
  Sex: Female

DRUGS (15)
  1. NEURONTIN [Suspect]
     Indication: NEURALGIA
     Dosage: UNK
     Route: 048
  2. MORPHINE SULFATE [Suspect]
     Indication: NEURALGIA
     Dosage: UNK
  3. ZANIDIP [Suspect]
     Indication: HYPERTENSION
     Route: 048
  4. COKENZEN [Suspect]
     Indication: HYPERTENSION
     Dosage: UNK
     Route: 048
  5. TOPALGIC [Suspect]
     Indication: NEURALGIA
     Dosage: 150 MG
     Route: 048
  6. CYMBALTA [Suspect]
     Indication: NEURALGIA
     Dosage: UNK
     Route: 048
  7. RIVOTRIL [Suspect]
     Dosage: UNK
     Route: 048
  8. LAROXYL [Suspect]
     Indication: NEURALGIA
     Dosage: UNK
     Route: 048
  9. CRESTOR [Concomitant]
  10. TANAKAN [Concomitant]
  11. OROCAL VITAMIN D [Concomitant]
  12. TRANSIPEG [Concomitant]
  13. DAFALGAN [Concomitant]
  14. VOLTARENE [Concomitant]
  15. OGAST [Concomitant]

REACTIONS (12)
  - Bacterial pyelonephritis [Recovered/Resolved]
  - Malaise [Recovered/Resolved]
  - Amnesia [Recovered/Resolved]
  - Presyncope [Recovered/Resolved]
  - Fall [Recovered/Resolved]
  - Craniocerebral injury [Recovered/Resolved]
  - Tachycardia [Recovered/Resolved]
  - Orthostatic hypotension [Recovered/Resolved]
  - Disorientation [Recovered/Resolved]
  - Balance disorder [Recovered/Resolved]
  - Paraesthesia [Recovered/Resolved]
  - Abdominal pain [Recovered/Resolved]
